FAERS Safety Report 19106927 (Version 1)
Quarter: 2021Q2

REPORT INFORMATION
  Report Type: Report from Study
  Country: US (occurrence: US)
  Receive Date: 20210408
  Receipt Date: 20210408
  Transmission Date: 20210717
  Serious: No
  Sender: FDA-Public Use
  Company Number: US-AGIOS-2104US02645

PATIENT

DRUGS (1)
  1. TIBSOVO [Suspect]
     Active Substance: IVOSIDENIB
     Indication: BRAIN NEOPLASM MALIGNANT
     Dosage: STOP DATE: 30?MAR?2021; 500 MILLIGRAM (TWO 250MG TABLETS), QD
     Route: 048
     Dates: end: 20210330

REACTIONS (3)
  - Neoplasm progression [Unknown]
  - Drug ineffective for unapproved indication [Unknown]
  - Off label use [Recovered/Resolved]
